FAERS Safety Report 21167197 (Version 3)
Quarter: 2022Q3

REPORT INFORMATION
  Report Type: Spontaneous
  Country: JP (occurrence: JP)
  Receive Date: 20220803
  Receipt Date: 20220824
  Transmission Date: 20221026
  Serious: Yes (Death, Hospitalization, Other)
  Sender: FDA-Public Use
  Company Number: JP-PFIZER INC-202200952769

PATIENT
  Age: 5 Decade
  Sex: Male
  Weight: 64 kg

DRUGS (12)
  1. PACLITAXEL [Suspect]
     Active Substance: PACLITAXEL
     Indication: Neoplasm malignant
     Dosage: UNK, CYCLIC
     Dates: start: 201911
  2. DOCETAXEL [Suspect]
     Active Substance: DOCETAXEL
     Dosage: UNK
     Dates: start: 202103
  3. CARBOPLATIN [Suspect]
     Active Substance: CARBOPLATIN
     Indication: Neoplasm malignant
     Dosage: UNK, CYCLIC
     Dates: start: 201911
  4. PACLITAXEL [Suspect]
     Active Substance: PACLITAXEL
     Indication: Neoplasm malignant
     Dosage: UNK, CYCLIC
  5. PEMBROLIZUMAB [Suspect]
     Active Substance: PEMBROLIZUMAB
     Indication: Neoplasm malignant
     Dosage: UNK, CYCLIC
  6. LENVIMA [Suspect]
     Active Substance: LENVATINIB
     Indication: Thymic carcinoma
     Dosage: 20 MG, 1X/DAY
     Route: 048
     Dates: start: 20220516, end: 20220523
  7. RAMUCIRUMAB [Suspect]
     Active Substance: RAMUCIRUMAB
     Dosage: UNK
     Dates: start: 202103
  8. LOXOPROFEN SODIUM [Concomitant]
     Active Substance: LOXOPROFEN SODIUM
     Indication: Cancer pain
     Dosage: 60 MG, SINGLE, AS NEEDED
     Dates: start: 20191121, end: 20220615
  9. LYRICA [Concomitant]
     Active Substance: PREGABALIN
     Indication: Neuralgia
     Dosage: 150 MG, 1X/DAY
     Dates: start: 20210118, end: 20220615
  10. SODIUM FERROUS CITRATE [Concomitant]
     Active Substance: SODIUM FERROUS CITRATE
     Indication: Anaemia
     Dosage: 100 MG, 1X/DAY
     Route: 048
     Dates: start: 20211108, end: 20220615
  11. NEXIUM [Concomitant]
     Active Substance: ESOMEPRAZOLE MAGNESIUM
     Indication: Ulcer
     Dosage: 20 MG, 1X/DAY
     Route: 048
     Dates: start: 20201116, end: 20220615
  12. HERBALS [Concomitant]
     Active Substance: HERBALS
     Indication: Hypoaesthesia
     Dosage: 1.5 G, 3X/DAY
     Dates: start: 20211018, end: 20220615

REACTIONS (3)
  - Neoplasm progression [Fatal]
  - Gastric perforation [Unknown]
  - Haematemesis [Unknown]

NARRATIVE: CASE EVENT DATE: 20220522
